FAERS Safety Report 16301416 (Version 3)
Quarter: 2020Q3

REPORT INFORMATION
  Report Type: Spontaneous
  Country: CA (occurrence: CA)
  Receive Date: 20190510
  Receipt Date: 20200723
  Transmission Date: 20201102
  Serious: Yes (Hospitalization, Other)
  Sender: FDA-Public Use
  Company Number: CA-BAXTER-2019BAX009226

PATIENT
  Age: 61 Year
  Sex: Female
  Weight: 85 kg

DRUGS (56)
  1. PROCYTOX (CYCLOPHOSPHAMIDE) 2000MG/VIAL [Suspect]
     Active Substance: CYCLOPHOSPHAMIDE
     Dosage: DOSAGE FORM: NOT SPECIFIED
     Route: 042
  2. EMEND [Suspect]
     Active Substance: APREPITANT
     Route: 048
  3. DOXORUBICIN HYDROCHLORIDE. [Suspect]
     Active Substance: DOXORUBICIN HYDROCHLORIDE
     Route: 042
  4. DOXORUBICIN HYDROCHLORIDE. [Suspect]
     Active Substance: DOXORUBICIN HYDROCHLORIDE
     Route: 042
  5. PEGFILGRASTIM [Suspect]
     Active Substance: PEGFILGRASTIM
     Route: 058
  6. EMEND [Suspect]
     Active Substance: APREPITANT
     Route: 048
  7. PEGFILGRASTIM [Suspect]
     Active Substance: PEGFILGRASTIM
     Route: 058
  8. NAPROXEN. [Concomitant]
     Active Substance: NAPROXEN
     Indication: PRODUCT USED FOR UNKNOWN INDICATION
     Dosage: DOSAGE FORM: NOT SPECIFIED
     Route: 048
  9. PROCYTOX (CYCLOPHOSPHAMIDE) 2000MG/VIAL [Suspect]
     Active Substance: CYCLOPHOSPHAMIDE
     Dosage: FORM STRENGTH: 2000 MG/VIAL
     Route: 042
  10. ONDANSETRON [Suspect]
     Active Substance: ONDANSETRON
     Dosage: DOSAGE FORM: NOT SPECIFIED
     Route: 048
  11. PREDNISONE. [Suspect]
     Active Substance: PREDNISONE
     Dosage: DOSAGE FORM: NOT SPECIFIED
     Route: 065
  12. ACETAMINOPHEN. [Concomitant]
     Active Substance: ACETAMINOPHEN
     Indication: PRODUCT USED FOR UNKNOWN INDICATION
     Dosage: DOSAGE FORM: NOT SPECIFIED
     Route: 048
  13. DEXAMETHASONE. [Concomitant]
     Active Substance: DEXAMETHASONE
     Route: 048
  14. VITAMIN D [Concomitant]
     Active Substance: VITAMIN D NOS
     Indication: PRODUCT USED FOR UNKNOWN INDICATION
     Dosage: DOSAGE FORM: NOT SPECIFIED
     Route: 048
  15. PROCYTOX (CYCLOPHOSPHAMIDE) 2000MG/VIAL [Suspect]
     Active Substance: CYCLOPHOSPHAMIDE
     Dosage: DOSAGE FORM: POWDER FOR SOLUTION INTRAVENOUS, FORM STRENGTH: 2000 MG/VIAL
     Route: 042
  16. PROCYTOX (CYCLOPHOSPHAMIDE) 2000MG/VIAL [Suspect]
     Active Substance: CYCLOPHOSPHAMIDE
     Dosage: DOSAGE FORM: NOT SPECIFIED
     Route: 042
  17. PEGFILGRASTIM [Suspect]
     Active Substance: PEGFILGRASTIM
     Indication: SUPPORTIVE CARE
     Route: 058
  18. GABAPENTIN. [Concomitant]
     Active Substance: GABAPENTIN
     Indication: PRODUCT USED FOR UNKNOWN INDICATION
     Dosage: DOSAGE FORM: NOT SPECIFIED
     Route: 048
  19. PROCYTOX (CYCLOPHOSPHAMIDE) 2000MG/VIAL [Suspect]
     Active Substance: CYCLOPHOSPHAMIDE
     Indication: BREAST CANCER
     Dosage: DOSAGE FORM: NOT SPECIFIED
     Route: 042
  20. EMEND [Suspect]
     Active Substance: APREPITANT
     Route: 048
  21. EMEND [Suspect]
     Active Substance: APREPITANT
     Route: 048
  22. ONDANSETRON [Suspect]
     Active Substance: ONDANSETRON
     Dosage: DOSAGE FORM: NOT SPECIFIED
     Route: 048
  23. PANTOPRAZOLE [Suspect]
     Active Substance: PANTOPRAZOLE
     Indication: PRODUCT USED FOR UNKNOWN INDICATION
     Dosage: DOSAGE FORM: NOT SPECIFIED
     Route: 048
  24. PEGFILGRASTIM [Suspect]
     Active Substance: PEGFILGRASTIM
     Route: 058
  25. TAMIFLU [Suspect]
     Active Substance: OSELTAMIVIR PHOSPHATE
     Indication: ADVERSE EVENT
     Dosage: DOSAGE FORM: NOT SPECIFIED
     Route: 065
  26. TRASTUZUMAB. [Suspect]
     Active Substance: TRASTUZUMAB
     Indication: BREAST CANCER
     Route: 065
  27. EMEND [Suspect]
     Active Substance: APREPITANT
     Route: 048
  28. EMEND [Suspect]
     Active Substance: APREPITANT
     Route: 048
  29. LEVAQUIN [Suspect]
     Active Substance: LEVOFLOXACIN
     Indication: ADVERSE EVENT
     Dosage: DOSAGE FORM: NOT SPECIFIED
     Route: 048
  30. METOCLOPRAMIDE. [Suspect]
     Active Substance: METOCLOPRAMIDE
     Indication: PRODUCT USED FOR UNKNOWN INDICATION
     Dosage: DOSAGE FORM: NOT SPECIFIED
     Route: 048
  31. PEGFILGRASTIM [Suspect]
     Active Substance: PEGFILGRASTIM
     Route: 058
  32. PEGFILGRASTIM [Suspect]
     Active Substance: PEGFILGRASTIM
     Route: 058
  33. PREDNISONE. [Suspect]
     Active Substance: PREDNISONE
     Indication: ADVERSE EVENT
     Dosage: DOSAGE FORM: NOT SPECIFIED
     Route: 065
  34. CITALOPRAM [Concomitant]
     Active Substance: CITALOPRAM HYDROBROMIDE
     Indication: PRODUCT USED FOR UNKNOWN INDICATION
     Dosage: DOSAGE FORM: TABLETS
     Route: 048
  35. PACLITAXEL. [Concomitant]
     Active Substance: PACLITAXEL
     Indication: BREAST CANCER
     Dosage: DOSAGE FORM: LIQUID INTRAVENOUS
     Route: 065
  36. PROCYTOX (CYCLOPHOSPHAMIDE) 2000MG/VIAL [Suspect]
     Active Substance: CYCLOPHOSPHAMIDE
     Dosage: DOSAGE FORM: NOT SPECIFIED
     Route: 042
  37. EMEND [Suspect]
     Active Substance: APREPITANT
     Indication: SUPPORTIVE CARE
     Route: 048
  38. EMEND [Suspect]
     Active Substance: APREPITANT
     Route: 048
  39. DOXORUBICIN HYDROCHLORIDE. [Suspect]
     Active Substance: DOXORUBICIN HYDROCHLORIDE
     Indication: BREAST CANCER
     Route: 042
  40. DOXORUBICIN HYDROCHLORIDE. [Suspect]
     Active Substance: DOXORUBICIN HYDROCHLORIDE
     Route: 042
  41. ONDANSETRON [Suspect]
     Active Substance: ONDANSETRON
     Dosage: DOSAGE FORM: NOT SPECIFIED
     Route: 048
  42. ONDANSETRON [Suspect]
     Active Substance: ONDANSETRON
     Dosage: DOSAGE FORM: NOT SPECIFIED
     Route: 048
  43. ONDANSETRON [Suspect]
     Active Substance: ONDANSETRON
     Dosage: DOSAGE FORM: NOT SPECIFIED
     Route: 048
  44. PEGFILGRASTIM [Suspect]
     Active Substance: PEGFILGRASTIM
     Route: 058
  45. DEXAMETHASONE. [Concomitant]
     Active Substance: DEXAMETHASONE
     Route: 048
  46. PROCYTOX (CYCLOPHOSPHAMIDE) 2000MG/VIAL [Suspect]
     Active Substance: CYCLOPHOSPHAMIDE
     Dosage: FORM STRENGTH: 2000 MG/VIAL
     Route: 042
  47. PROCYTOX (CYCLOPHOSPHAMIDE) 2000MG/VIAL [Suspect]
     Active Substance: CYCLOPHOSPHAMIDE
     Dosage: FORM STRENGTH: 2000 MG/VIAL
     Route: 042
  48. PROCYTOX (CYCLOPHOSPHAMIDE) 2000MG/VIAL [Suspect]
     Active Substance: CYCLOPHOSPHAMIDE
     Dosage: FORM STRENGTH: 2000 MG/VIAL
     Route: 042
  49. PROCYTOX (CYCLOPHOSPHAMIDE) 2000MG/VIAL [Suspect]
     Active Substance: CYCLOPHOSPHAMIDE
     Dosage: DOSAGE FORM: NOT SPECIFIED
     Route: 042
  50. EMEND [Suspect]
     Active Substance: APREPITANT
     Route: 048
  51. DOXORUBICIN HYDROCHLORIDE. [Suspect]
     Active Substance: DOXORUBICIN HYDROCHLORIDE
     Route: 042
  52. ONDANSETRON [Suspect]
     Active Substance: ONDANSETRON
     Indication: SUPPORTIVE CARE
     Dosage: DOSAGE FORM: NOT SPECIFIED
     Route: 048
  53. ONDANSETRON [Suspect]
     Active Substance: ONDANSETRON
     Dosage: DOSAGE FORM: NOT SPECIFIED
     Route: 048
  54. ONDANSETRON [Suspect]
     Active Substance: ONDANSETRON
     Dosage: DOSAGE FORM: NOT SPECIFIED
     Route: 048
  55. DEXAMETHASONE. [Concomitant]
     Active Substance: DEXAMETHASONE
     Indication: SUPPORTIVE CARE
     Dosage: DOSAGE FORM: NOT SPECIFIED
     Route: 048
  56. HYDROMORPHONE [Concomitant]
     Active Substance: HYDROMORPHONE
     Indication: PRODUCT USED FOR UNKNOWN INDICATION
     Dosage: DOSAGE FORM: NOT SPECIFIED
     Route: 048

REACTIONS (8)
  - Gastrointestinal disorder [Recovered/Resolved]
  - Respiratory syncytial virus infection [Recovered/Resolved]
  - Respiratory failure [Recovered/Resolved]
  - Atelectasis [Recovered/Resolved]
  - Decreased appetite [Recovered/Resolved]
  - Asthenia [Recovered/Resolved]
  - Dyspnoea [Recovered/Resolved]
  - Nausea [Recovered/Resolved]
